FAERS Safety Report 20520176 (Version 2)
Quarter: 2022Q1

REPORT INFORMATION
  Report Type: Spontaneous
  Country: US (occurrence: US)
  Receive Date: 20220225
  Receipt Date: 20220311
  Transmission Date: 20220423
  Serious: No
  Sender: FDA-Public Use
  Company Number: US-009507513-2201USA008689

PATIENT
  Age: 71 Year
  Sex: Male

DRUGS (2)
  1. KEYTRUDA [Suspect]
     Active Substance: PEMBROLIZUMAB
     Indication: Neoplasm malignant
     Dosage: UNK, ONE DOSE
     Dates: start: 202112
  2. XELJANZ [Suspect]
     Active Substance: TOFACITINIB CITRATE
     Indication: Neoplasm malignant
     Dosage: UNK

REACTIONS (4)
  - Ill-defined disorder [Unknown]
  - Chills [Unknown]
  - Pyrexia [Unknown]
  - Labelled drug-drug interaction issue [Unknown]

NARRATIVE: CASE EVENT DATE: 20211201
